FAERS Safety Report 25406507 (Version 1)
Quarter: 2025Q2

REPORT INFORMATION
  Report Type: Spontaneous
  Country: JP (occurrence: JP)
  Receive Date: 20250606
  Receipt Date: 20250606
  Transmission Date: 20250716
  Serious: Yes (Death)
  Sender: OTSUKA
  Company Number: JP-MMM-Otsuka-K1Q2U0ZN

PATIENT
  Age: 8 Decade
  Sex: Female

DRUGS (4)
  1. REXULTI [Suspect]
     Active Substance: BREXPIPRAZOLE
     Indication: Dementia Alzheimer^s type
     Route: 048
     Dates: end: 202504
  2. REXULTI [Suspect]
     Active Substance: BREXPIPRAZOLE
     Indication: Irritability
     Route: 048
     Dates: start: 202412, end: 2025
  3. REXULTI [Suspect]
     Active Substance: BREXPIPRAZOLE
     Indication: Aggression
  4. REXULTI [Suspect]
     Active Substance: BREXPIPRAZOLE
     Indication: Anger

REACTIONS (1)
  - Feeding disorder [Fatal]
